FAERS Safety Report 10615653 (Version 2)
Quarter: 2014Q4

REPORT INFORMATION
  Report Type: Spontaneous
  Country: DE (occurrence: DE)
  Receive Date: 20141201
  Receipt Date: 20141212
  Transmission Date: 20150529
  Serious: Yes (Other)
  Sender: FDA-Public Use
  Company Number: DE-SA-2014SA163791

PATIENT
  Age: 69 Year
  Sex: Female
  Weight: 52 kg

DRUGS (12)
  1. ONDANSETRON [Concomitant]
     Active Substance: ONDANSETRON
     Indication: PROPHYLACTIC CHEMOTHERAPY
     Route: 042
  2. LOPERAMIDE [Concomitant]
     Active Substance: LOPERAMIDE
     Indication: DIARRHOEA
     Route: 048
  3. FOLINIC ACID [Suspect]
     Active Substance: LEUCOVORIN
     Indication: COLORECTAL CANCER METASTATIC
     Dates: start: 20141013, end: 20141013
  4. IRINOTECAN [Suspect]
     Active Substance: IRINOTECAN
     Indication: COLORECTAL CANCER METASTATIC
     Dates: start: 20141027, end: 20141027
  5. 5-FU [Suspect]
     Active Substance: FLUOROURACIL
     Indication: COLORECTAL CANCER METASTATIC
     Dates: start: 20141027, end: 20141027
  6. DEXAMETHASONE. [Concomitant]
     Active Substance: DEXAMETHASONE
     Indication: PREMEDICATION
     Route: 042
  7. 5-FU [Suspect]
     Active Substance: FLUOROURACIL
     Indication: COLORECTAL CANCER METASTATIC
     Dates: start: 20141013, end: 20141013
  8. IRINOTECAN [Suspect]
     Active Substance: IRINOTECAN
     Indication: COLORECTAL CANCER METASTATIC
     Dates: start: 20141013, end: 20141013
  9. ZALTRAP [Suspect]
     Active Substance: ZIV-AFLIBERCEPT
     Indication: COLORECTAL CANCER METASTATIC
     Route: 042
     Dates: start: 20141013, end: 20141013
  10. ZALTRAP [Suspect]
     Active Substance: ZIV-AFLIBERCEPT
     Indication: COLORECTAL CANCER METASTATIC
     Route: 042
     Dates: start: 20141027, end: 20141027
  11. FOLINIC ACID [Suspect]
     Active Substance: LEUCOVORIN
     Indication: COLORECTAL CANCER METASTATIC
     Dates: start: 20141027, end: 20141027
  12. BUDESONIDE. [Concomitant]
     Active Substance: BUDESONIDE
     Indication: DIARRHOEA
     Route: 048

REACTIONS (6)
  - Nausea [Recovering/Resolving]
  - Weight decreased [Recovering/Resolving]
  - Pancreatitis [Recovering/Resolving]
  - Abdominal pain [Recovering/Resolving]
  - Malaise [Recovering/Resolving]
  - Jaundice cholestatic [Recovering/Resolving]
